FAERS Safety Report 20486524 (Version 1)
Quarter: 2022Q1

REPORT INFORMATION
  Report Type: Spontaneous
  Country: US (occurrence: US)
  Receive Date: 20220217
  Receipt Date: 20220217
  Transmission Date: 20220423
  Serious: No
  Sender: FDA-Public Use
  Company Number: US-009507513-2201USA005513

PATIENT
  Age: 41 Year
  Sex: Male

DRUGS (8)
  1. TEMODAR [Suspect]
     Active Substance: TEMOZOLOMIDE
     Indication: Insulinoma
     Dosage: UNK
  2. TEMODAR [Suspect]
     Active Substance: TEMOZOLOMIDE
     Indication: Metastases to liver
  3. TEMODAR [Suspect]
     Active Substance: TEMOZOLOMIDE
     Indication: Neuroendocrine carcinoma metastatic
  4. CAPECITABINE [Concomitant]
     Active Substance: CAPECITABINE
     Indication: Insulinoma
     Dosage: UNK
  5. CAPECITABINE [Concomitant]
     Active Substance: CAPECITABINE
     Indication: Metastases to liver
  6. CAPECITABINE [Concomitant]
     Active Substance: CAPECITABINE
     Indication: Neuroendocrine carcinoma metastatic
  7. DIAZOXIDE [Concomitant]
     Active Substance: DIAZOXIDE
     Dosage: UNK
  8. SOMATOSTATIN [Concomitant]
     Active Substance: SOMATOSTATIN
     Dosage: UNK

REACTIONS (1)
  - Product use in unapproved indication [Unknown]
